FAERS Safety Report 24309202 (Version 1)
Quarter: 2024Q3

REPORT INFORMATION
  Report Type: Spontaneous
  Country: CA (occurrence: CA)
  Receive Date: 20240911
  Receipt Date: 20240911
  Transmission Date: 20241017
  Serious: Yes (Hospitalization, Other)
  Sender: MERCK
  Company Number: CA-009507513-2409CAN001761

PATIENT
  Age: 82 Year
  Sex: Male
  Weight: 54 kg

DRUGS (21)
  1. INVANZ [Suspect]
     Active Substance: ERTAPENEM SODIUM
     Indication: Osteitis
     Dosage: 1 GRAM, 1 EVERY 1 DAYS
     Route: 042
  2. CEFAZOLIN [Suspect]
     Active Substance: CEFAZOLIN
     Indication: Osteitis
     Dosage: 2 GRAM, 1 EVERY 8 HOURS
     Route: 042
  3. ROCEPHIN [Suspect]
     Active Substance: CEFTRIAXONE SODIUM
     Indication: Osteitis
     Dosage: 2 GRAM, 1 EVERY 1 DAYS
  4. ACETAMINOPHEN [Concomitant]
     Active Substance: ACETAMINOPHEN
  5. ASPIRIN [Concomitant]
     Active Substance: ASPIRIN
     Route: 065
  6. AMLODIPINE [Concomitant]
     Active Substance: AMLODIPINE BESYLATE
     Route: 065
  7. BISOPROLOL [Concomitant]
     Active Substance: BISOPROLOL\BISOPROLOL FUMARATE
     Route: 065
  8. CLONAZEPAM [Concomitant]
     Active Substance: CLONAZEPAM
  9. CLOPIDOGREL [Concomitant]
     Active Substance: CLOPIDOGREL BISULFATE
  10. DEXILANT [Concomitant]
     Active Substance: DEXLANSOPRAZOLE
  11. EZETIMIBE [Concomitant]
     Active Substance: EZETIMIBE
  12. FLUTICASONE PROPIONATE\SALMETEROL XINAFOATE [Concomitant]
     Active Substance: FLUTICASONE PROPIONATE\SALMETEROL XINAFOATE
     Dosage: UNK
  13. LOPERAMIDE [Concomitant]
     Active Substance: LOPERAMIDE
  14. METFORMIN [Concomitant]
     Active Substance: METFORMIN HYDROCHLORIDE
  15. NALOXONE [Concomitant]
     Active Substance: NALOXONE
  16. NITROGLYCERIN [Concomitant]
     Active Substance: NITROGLYCERIN
  17. POLYETHYLENE GLYCOL, UNSPECIFIED [Concomitant]
     Active Substance: POLYETHYLENE GLYCOL, UNSPECIFIED
  18. PRAVASTATIN SODIUM [Concomitant]
     Active Substance: PRAVASTATIN SODIUM
  19. SPIRIVA [Concomitant]
     Active Substance: TIOTROPIUM BROMIDE MONOHYDRATE
     Route: 065
  20. TRANDOLAPRIL [Concomitant]
     Active Substance: TRANDOLAPRIL
  21. VITAMIN D NOS [Concomitant]
     Active Substance: CHOLECALCIFEROL\ERGOCALCIFEROL

REACTIONS (4)
  - Acute kidney injury [Recovered/Resolved]
  - Clostridium difficile colitis [Recovered/Resolved]
  - Delirium [Recovered/Resolved]
  - Leukocytosis [Recovered/Resolved]
